FAERS Safety Report 4637956-8 (Version None)
Quarter: 2005Q2

REPORT INFORMATION
  Report Type: 
  Country: None (occurrence: None)
  Receive Date: 20050415
  Receipt Date: 20050407
  Transmission Date: 20051028
  Serious: Yes (Death)
  Sender: FDA-Public Use
  Company Number: 2005SE02094

PATIENT
  Age: 69 Year
  Sex: Female

DRUGS (1)
  1. PROPOFOL-BRAUN [Suspect]

REACTIONS (3)
  - ANAESTHETIC COMPLICATION [None]
  - ANGIONEUROTIC OEDEMA [None]
  - INJURY ASPHYXIATION [None]
